FAERS Safety Report 18214191 (Version 16)
Quarter: 2024Q1

REPORT INFORMATION
  Report Type: Report from Study
  Country: CO (occurrence: CO)
  Receive Date: 20200831
  Receipt Date: 20240212
  Transmission Date: 20240410
  Serious: Yes (Life-Threatening, Hospitalization, Other)
  Sender: FDA-Public Use
  Company Number: PHHY2019CO079955

PATIENT
  Age: 56 Year
  Sex: Male
  Weight: 62 kg

DRUGS (9)
  1. ELTROMBOPAG OLAMINE [Suspect]
     Active Substance: ELTROMBOPAG OLAMINE
     Indication: Aplastic anaemia
     Dosage: 100 MG, QD
     Route: 048
     Dates: start: 201902
  2. ELTROMBOPAG OLAMINE [Suspect]
     Active Substance: ELTROMBOPAG OLAMINE
     Dosage: 100 MG, QD
     Route: 048
     Dates: start: 20190313
  3. ELTROMBOPAG OLAMINE [Suspect]
     Active Substance: ELTROMBOPAG OLAMINE
     Dosage: 25 MG, QD (ONCE A DAY)
     Route: 048
  4. ELTROMBOPAG OLAMINE [Suspect]
     Active Substance: ELTROMBOPAG OLAMINE
     Dosage: UNK UNK, QD
     Route: 048
  5. ELTROMBOPAG OLAMINE [Suspect]
     Active Substance: ELTROMBOPAG OLAMINE
     Dosage: 50 MG
     Route: 048
  6. ELTROMBOPAG OLAMINE [Suspect]
     Active Substance: ELTROMBOPAG OLAMINE
     Dosage: 50 MG, QD
     Route: 048
  7. ELTROMBOPAG OLAMINE [Suspect]
     Active Substance: ELTROMBOPAG OLAMINE
     Dosage: 25 MG, QD
     Route: 048
  8. ELTROMBOPAG OLAMINE [Suspect]
     Active Substance: ELTROMBOPAG OLAMINE
     Dosage: 2 DOSAGE FORM
     Route: 065
     Dates: start: 20190313
  9. JADENU [Suspect]
     Active Substance: DEFERASIROX
     Indication: Aplastic anaemia
     Dosage: 360 MG, QD
     Route: 048
     Dates: start: 201907

REACTIONS (19)
  - Irritable bowel syndrome [Unknown]
  - Platelet count decreased [Unknown]
  - Disease recurrence [Unknown]
  - Back pain [Unknown]
  - Platelet count increased [Unknown]
  - Haemorrhage [Unknown]
  - Depressed mood [Unknown]
  - Ear infection [Unknown]
  - Petechiae [Unknown]
  - Erythema [Unknown]
  - Liver disorder [Unknown]
  - Weight decreased [Unknown]
  - Pigmentation disorder [Unknown]
  - Haemoglobin decreased [Recovering/Resolving]
  - Pallor [Recovering/Resolving]
  - Diarrhoea [Unknown]
  - Wrong technique in product usage process [Not Recovered/Not Resolved]
  - Product dispensing error [Unknown]
  - COVID-19 [Unknown]

NARRATIVE: CASE EVENT DATE: 20190319
